FAERS Safety Report 6415389-1 (Version None)
Quarter: 2009Q4

REPORT INFORMATION
  Report Type: 
  Country: None (occurrence: None)
  Receive Date: 20091027
  Receipt Date: 20091022
  Transmission Date: 20100525
  Serious: Yes (Hospitalization)
  Sender: FDA-Public Use
  Company Number: GB-SP-2009-04455

PATIENT
  Age: 82 Year
  Sex: Male

DRUGS (1)
  1. IMMUCYST [Suspect]
     Indication: BLADDER CANCER
     Route: 043
     Dates: start: 20090701, end: 20091009

REACTIONS (7)
  - BOVINE TUBERCULOSIS [None]
  - CHILLS [None]
  - DISTURBANCE IN ATTENTION [None]
  - HYPOXIA [None]
  - LETHARGY [None]
  - MALAISE [None]
  - PYREXIA [None]
